FAERS Safety Report 9187918 (Version 1)
Quarter: 2013Q1

REPORT INFORMATION
  Report Type: Spontaneous
  Country: US (occurrence: US)
  Receive Date: 20130325
  Receipt Date: 20130325
  Transmission Date: 20140127
  Serious: No
  Sender: FDA-Public Use
  Company Number: US-MYLANLABS-2012S1018020

PATIENT
  Age: 60 Year
  Sex: Female
  Weight: 87.09 kg

DRUGS (11)
  1. FENTANYL TRANSDERMAL SYSTEM [Suspect]
     Indication: PAIN
     Dosage: Q48H
     Route: 062
     Dates: start: 201107
  2. WELLBUTRIN [Concomitant]
     Route: 048
  3. SERTRALINE [Concomitant]
     Route: 048
  4. PREMARIN [Concomitant]
     Route: 048
  5. LEFLUNOMIDE [Concomitant]
     Route: 048
  6. LISINOPRIL/HCTZ [Concomitant]
     Route: 048
  7. VIT B2 [Concomitant]
  8. VIT D3 [Concomitant]
     Route: 048
  9. VYTORIN [Concomitant]
     Route: 048
  10. LYRICA [Concomitant]
     Route: 048
  11. VICODIN [Concomitant]
     Route: 048

REACTIONS (2)
  - Application site pruritus [Not Recovered/Not Resolved]
  - Application site pain [Not Recovered/Not Resolved]
